FAERS Safety Report 5385652-4 (Version None)
Quarter: 2007Q3

REPORT INFORMATION
  Report Type: 
  Country: None (occurrence: None)
  Receive Date: 20070712
  Receipt Date: 20070702
  Transmission Date: 20080115
  Serious: Yes (Hospitalization, Other)
  Sender: FDA-Public Use
  Company Number: US-PFIZER INC-2006118513

PATIENT
  Sex: Female
  Weight: 63.5 kg

DRUGS (6)
  1. CELEBREX [Suspect]
     Indication: GOUT
  2. CELEBREX [Suspect]
     Indication: OSTEOARTHRITIS
  3. BEXTRA [Suspect]
     Indication: GOUT
     Dates: start: 20040930
  4. BEXTRA [Suspect]
     Indication: OSTEOARTHRITIS
  5. VIOXX [Suspect]
     Indication: GOUT
  6. VIOXX [Suspect]
     Indication: OSTEOARTHRITIS

REACTIONS (2)
  - CEREBROVASCULAR ACCIDENT [None]
  - MYOCARDIAL INFARCTION [None]
